FAERS Safety Report 10506738 (Version 1)
Quarter: 2014Q3

REPORT INFORMATION
  Report Type: Spontaneous
  Country: US (occurrence: None)
  Receive Date: 20140915
  Receipt Date: 20140915
  Transmission Date: 20150326
  Serious: Yes (Other)
  Sender: FDA-Public Use
  Company Number: 2013-US-003548

PATIENT
  Age: 54 Year
  Sex: Female

DRUGS (6)
  1. VIVELLE (ETHINYLESTRADIOL, NORGESTIMATE) [Concomitant]
  2. CYMBALTA [Concomitant]
     Active Substance: DULOXETINE HYDROCHLORIDE
  3. XYREM [Suspect]
     Active Substance: SODIUM OXYBATE
     Indication: NARCOLEPSY
     Route: 048
     Dates: start: 200211
  4. CYMBALTA [Concomitant]
     Active Substance: DULOXETINE HYDROCHLORIDE
  5. TOPAMAX [Concomitant]
     Active Substance: TOPIRAMATE
  6. PROVIGIL [Concomitant]
     Active Substance: MODAFINIL

REACTIONS (6)
  - Depression [None]
  - Sleep disorder [None]
  - Osteoporosis [None]
  - Weight increased [None]
  - Peripheral arterial occlusive disease [None]
  - Abnormal dreams [None]

NARRATIVE: CASE EVENT DATE: 2011
